FAERS Safety Report 10929402 (Version 1)
Quarter: 2015Q1

REPORT INFORMATION
  Report Type: Spontaneous
  Country: US (occurrence: None)
  Receive Date: 20150317
  Receipt Date: 20150317
  Transmission Date: 20150721
  Serious: Yes (Hospitalization)
  Sender: FDA-Public Use
  Company Number: None

PATIENT
  Sex: Female

DRUGS (1)
  1. SOLU-MEDROL [Suspect]
     Active Substance: METHYLPREDNISOLONE SODIUM SUCCINATE
     Indication: MULTIPLE SCLEROSIS
     Dates: start: 20140110, end: 20140114

REACTIONS (7)
  - Amnesia [None]
  - Autoimmune hepatitis [None]
  - Fatigue [None]
  - Cholelithiasis [None]
  - Visual impairment [None]
  - Central nervous system lesion [None]
  - Drug-induced liver injury [None]

NARRATIVE: CASE EVENT DATE: 20140121
